FAERS Safety Report 4960925-5 (Version None)
Quarter: 2006Q1

REPORT INFORMATION
  Report Type: 
  Country: None (occurrence: None)
  Receive Date: 20060207
  Receipt Date: 20050103
  Transmission Date: 20060701
  Serious: Yes (Hospitalization)
  Sender: FDA-Public Use
  Company Number: 05P-163-0285459-00

PATIENT
  Age: 67 Year
  Sex: Female

DRUGS (5)
  1. TRICOR [Suspect]
     Dosage: 300 MG, 1 IN 1 D, PER ORAL
     Route: 048
     Dates: end: 20041106
  2. LANSOPRAZOLE [Suspect]
     Dosage: 300 MG, 1 IN 1 D
     Dates: end: 20041102
  3. PANTOPRAZOLE (PANTOPRAZOLE) (PANTOPRAZOLE) [Suspect]
     Dates: start: 20041102, end: 20041106
  4. COVERSYL [Suspect]
     Dosage: 4 MG, 1 IN 1 D
     Dates: end: 20041106
  5. TRIMEBUTINE [Suspect]
     Dosage: 300 MG, 1 IN 1 D
     Dates: end: 20041106

REACTIONS (1)
  - PANCREATITIS ACUTE [None]
